FAERS Safety Report 10404417 (Version 1)
Quarter: 2014Q1

REPORT INFORMATION
  Report Type: Spontaneous
  Country: US (occurrence: None)
  Receive Date: 20130815
  Receipt Date: 20130815
  Transmission Date: 20141002
  Serious: Yes (Hospitalization, Other)
  Sender: FDA-Public Use
  Company Number: ADR-2012-02040

PATIENT
  Age: 48 Year
  Sex: Female

DRUGS (5)
  1. LIORESAL INTRATHECAL(BACLOFEN INJECTION) 2000 MCG/ML [Suspect]
     Indication: PAIN
     Dosage: 96 MCG/DAY
  2. FENTANYL [Concomitant]
  3. CLONIDINE [Concomitant]
  4. MARCAINE [Concomitant]
  5. BACLOFEN [Concomitant]

REACTIONS (4)
  - Nausea [None]
  - Convulsion [None]
  - Vomiting [None]
  - Implant site scar [None]
